FAERS Safety Report 21513450 (Version 1)
Quarter: 2022Q4

REPORT INFORMATION
  Report Type: Spontaneous
  Country: MX (occurrence: MX)
  Receive Date: 20221027
  Receipt Date: 20221027
  Transmission Date: 20230113
  Serious: Yes (Other)
  Sender: FDA-Public Use
  Company Number: MX-CHIESI-2022CHF05539

PATIENT
  Sex: Male
  Weight: 1.5 kg

DRUGS (1)
  1. PORACTANT ALFA [Suspect]
     Active Substance: PORACTANT ALFA
     Indication: Neonatal respiratory distress syndrome
     Dosage: 200 MILLIGRAM/KILOGRAM
     Route: 007

REACTIONS (1)
  - Infantile apnoea [Recovered/Resolved]
